FAERS Safety Report 9159565 (Version 1)
Quarter: 2013Q1

REPORT INFORMATION
  Report Type: Spontaneous
  Country: US (occurrence: None)
  Receive Date: 20130212
  Receipt Date: 20130212
  Transmission Date: 20140127
  Serious: Yes (Other)
  Sender: FDA-Public Use
  Company Number: SYM-2013-00460

PATIENT
  Sex: Female

DRUGS (3)
  1. WELLBUTRIN (BUPROPION HYDROCHLORIDE) (TABLETS) (BUPROPION HYDROCHLORIDE) [Suspect]
     Indication: EX-TOBACCO USER
     Route: 048
  2. WELLBUTRIN (BUPROPION HYDROCHLORIDE) (TABLETS) (BUPROPION HYDROCHLORIDE) [Suspect]
     Indication: PRODUCT USED FOR UNKNOWN INDICATION
     Route: 048
  3. VARENICLINE TARTRATE (VARENICLINE TARTRATE) (TABLETS) (VARENICLINE TARTRATE) [Suspect]

REACTIONS (2)
  - Convulsion [None]
  - Feeling abnormal [None]
